FAERS Safety Report 9538700 (Version 2)
Quarter: 2013Q4

REPORT INFORMATION
  Report Type: Spontaneous
  Country: FR (occurrence: FR)
  Receive Date: 20130920
  Receipt Date: 20131017
  Transmission Date: 20140711
  Serious: Yes (Hospitalization)
  Sender: FDA-Public Use
  Company Number: FR-NOVOPROD-387663

PATIENT
  Age: 70 Year
  Sex: Female
  Weight: 86 kg

DRUGS (9)
  1. VICTOZA [Suspect]
     Indication: TYPE 2 DIABETES MELLITUS
     Dosage: 1.8 MG, QD
     Route: 058
     Dates: start: 201002, end: 20130528
  2. LEVEMIR [Concomitant]
     Indication: TYPE 2 DIABETES MELLITUS
     Dosage: 20 IU, QD
     Route: 058
     Dates: start: 201209
  3. DAONIL [Concomitant]
     Dosage: 3 TABLETS DAILY
  4. AMAREL [Concomitant]
     Indication: TYPE 2 DIABETES MELLITUS
     Dosage: 5 MG, QD
     Route: 048
     Dates: end: 201309
  5. LIPANTHYL [Concomitant]
     Indication: TYPE 2 DIABETES MELLITUS
     Dosage: 145 MG
     Route: 048
     Dates: start: 2009
  6. LEVOTHYROX [Concomitant]
     Indication: HYPOTHYROIDISM
     Dosage: 175 ?G, QD
     Route: 048
  7. CYNOMEL [Concomitant]
     Indication: HYPOTHYROIDISM
     Dosage: 12.50 ?G, QD
     Route: 048
  8. COAPROVEL [Concomitant]
     Indication: HYPERTENSION
     Dosage: 192.50 MG, QD
     Route: 048
  9. KARDEGIC [Concomitant]
     Indication: PROPHYLAXIS
     Dosage: 75 MG, QD
     Route: 048

REACTIONS (1)
  - Pancreatitis acute [Recovered/Resolved]
